FAERS Safety Report 15357614 (Version 1)
Quarter: 2018Q3

REPORT INFORMATION
  Report Type: Spontaneous
  Country: CA (occurrence: CA)
  Receive Date: 20180906
  Receipt Date: 20180906
  Transmission Date: 20181010
  Serious: Yes (Other)
  Sender: FDA-Public Use
  Company Number: CA-TEVA-2018-CA-951258

PATIENT
  Age: 78 Year
  Sex: Female
  Weight: 88 kg

DRUGS (4)
  1. ROSUVASTATIN. [Concomitant]
     Active Substance: ROSUVASTATIN
  2. TEVA?VALSARTAN [Suspect]
     Active Substance: VALSARTAN
     Route: 065
  3. SANDOZ VALSARTAN [Suspect]
     Active Substance: VALSARTAN
     Route: 065
  4. BISOPROLOL [Concomitant]
     Active Substance: BISOPROLOL

REACTIONS (7)
  - Decreased activity [Unknown]
  - Fatigue [Unknown]
  - Mental impairment [Unknown]
  - Visual impairment [Unknown]
  - Bone pain [Unknown]
  - Headache [Unknown]
  - Vomiting [Unknown]
